FAERS Safety Report 5867229-7 (Version None)
Quarter: 2008Q3

REPORT INFORMATION
  Report Type: 
  Country: None (occurrence: None)
  Receive Date: 20080902
  Receipt Date: 20080821
  Transmission Date: 20090109
  Serious: Yes (Hospitalization, Other)
  Sender: FDA-Public Use
  Company Number: GB-MERCK-0808GBR00098

PATIENT
  Age: 26 Year
  Sex: Female

DRUGS (3)
  1. DECADRON [Suspect]
     Indication: THROMBOSIS
     Route: 042
  2. DECADRON [Suspect]
     Indication: HAEMORRHAGE
     Route: 042
  3. HEPARIN [Concomitant]
     Route: 042

REACTIONS (3)
  - CAESAREAN SECTION [None]
  - DRUG INEFFECTIVE [None]
  - SUPERIOR SAGITTAL SINUS THROMBOSIS [None]
